FAERS Safety Report 7374270-4 (Version None)
Quarter: 2011Q1

REPORT INFORMATION
  Report Type: 
  Country: None (occurrence: None)
  Receive Date: 20110316
  Receipt Date: 20110302
  Transmission Date: 20110831
  Serious: Yes (Other)
  Sender: FDA-Public Use
  Company Number: 2010004255

PATIENT
  Age: 76 Year
  Sex: Male
  Weight: 41.7 kg

DRUGS (7)
  1. AMITRIPTYLINE HCL [Concomitant]
  2. LAFUTIDINE [Concomitant]
  3. IMIDAPRIL (IMIDAPRIL) [Concomitant]
  4. LANIRAPID (METILDIGOXIN) [Concomitant]
  5. METHYCOBAL (MECOBALAMIN) [Concomitant]
  6. ERLOTINIB HYDROCHLORIDE [Suspect]
     Indication: LUNG ADENOCARCINOMA
     Dosage: (150 MG,QD),ORAL
     Route: 048
     Dates: start: 20090409, end: 20090522
  7. SEROQUEL [Concomitant]

REACTIONS (4)
  - PNEUMOTHORAX [None]
  - LUNG ADENOCARCINOMA STAGE IV [None]
  - NEOPLASM MALIGNANT [None]
  - LYMPHANGIOSIS CARCINOMATOSA [None]
